FAERS Safety Report 10034294 (Version 1)
Quarter: 2014Q1

REPORT INFORMATION
  Report Type: Spontaneous
  Country: US (occurrence: None)
  Receive Date: 20140324
  Receipt Date: 20140324
  Transmission Date: 20141002
  Serious: Yes (Other)
  Sender: FDA-Public Use
  Company Number: None

PATIENT
  Age: 26 Year
  Sex: Female
  Weight: 56.7 kg

DRUGS (2)
  1. CLINDAMYCIN [Suspect]
     Indication: INFECTION PROPHYLAXIS
     Route: 048
     Dates: start: 20140120, end: 20140127
  2. CLINDAMYCIN [Suspect]
     Indication: ALVEOLAR OSTEITIS
     Route: 048
     Dates: start: 20140120, end: 20140127

REACTIONS (10)
  - Diarrhoea [None]
  - Vomiting [None]
  - Nausea [None]
  - Abdominal pain [None]
  - Decreased appetite [None]
  - Diarrhoea haemorrhagic [None]
  - Gastroenteritis [None]
  - Food poisoning [None]
  - Gastroenteritis viral [None]
  - Clostridium test positive [None]
